FAERS Safety Report 9138849 (Version 1)
Quarter: 2013Q1

REPORT INFORMATION
  Report Type: Spontaneous
  Country: US (occurrence: US)
  Receive Date: 20130305
  Receipt Date: 20130305
  Transmission Date: 20140127
  Serious: No
  Sender: FDA-Public Use
  Company Number: US-PFIZER INC-2013074432

PATIENT
  Age: 62 Year
  Sex: Female
  Weight: 36.28 kg

DRUGS (5)
  1. RELPAX [Suspect]
     Indication: HEADACHE
     Dosage: UNK
  2. RELPAX [Interacting]
     Indication: MIGRAINE
  3. ACETYLSALICYLIC ACID [Interacting]
     Dosage: UNK
  4. TOPIRAMATE [Interacting]
     Dosage: UNK
  5. CYMBALTA [Interacting]
     Dosage: UNK

REACTIONS (8)
  - Drug interaction [Unknown]
  - Feeling abnormal [Not Recovered/Not Resolved]
  - Fall [Not Recovered/Not Resolved]
  - Gait disturbance [Not Recovered/Not Resolved]
  - Confusional state [Not Recovered/Not Resolved]
  - Diarrhoea [Unknown]
  - Abdominal pain upper [Unknown]
  - Fatigue [Not Recovered/Not Resolved]
